FAERS Safety Report 7827030-1 (Version None)
Quarter: 2011Q4

REPORT INFORMATION
  Report Type: 
  Country: None (occurrence: None)
  Receive Date: 20111018
  Receipt Date: 20111004
  Transmission Date: 20120403
  Serious: Yes (Death, Other)
  Sender: FDA-Public Use
  Company Number: CLOF-1000273

PATIENT
  Age: 69 Year
  Sex: Male
  Weight: 85 kg

DRUGS (7)
  1. FLUCONAZOLE [Concomitant]
  2. ACYCLOVIR [Concomitant]
  3. EVOLTRA (CLOFARABINE) SOLUTION FOR INFUSION [Suspect]
     Indication: ACUTE MYELOID LEUKAEMIA
     Dosage: 40 MG,QDX5, INTRAVENOUS
     Route: 042
     Dates: start: 20080415, end: 20080419
  4. FLUDARA [Suspect]
     Indication: ACUTE MYELOID LEUKAEMIA
  5. CLONAZEPAM [Concomitant]
  6. OMEPRAZOLE [Concomitant]
  7. ALLOPURINOL [Concomitant]

REACTIONS (6)
  - TOXICITY TO VARIOUS AGENTS [None]
  - HAEMOGLOBIN DECREASED [None]
  - ACUTE MYELOID LEUKAEMIA [None]
  - NEUTROPENIA [None]
  - NEOPLASM PROGRESSION [None]
  - THROMBOCYTOPENIA [None]
